FAERS Safety Report 5691326-2 (Version None)
Quarter: 2008Q2

REPORT INFORMATION
  Report Type: 
  Country: None (occurrence: None)
  Receive Date: 20080402
  Receipt Date: 20080307
  Transmission Date: 20081010
  Serious: Yes (Death)
  Sender: FDA-Public Use
  Company Number: DE-BAYER-200815653GPV

PATIENT

DRUGS (5)
  1. FLUDARABINE [Suspect]
     Indication: BONE MARROW CONDITIONING REGIMEN
     Dosage: AS USED: 125 MG/M2  UNIT DOSE: 125 MG/M2
     Route: 065
  2. BUSULFAN [Suspect]
     Indication: BONE MARROW CONDITIONING REGIMEN
     Dosage: AS USED: 12 MG/KG  UNIT DOSE: 12 MG/KG
     Route: 065
  3. CYCLOPHOSPHAMIDE [Suspect]
     Indication: BONE MARROW CONDITIONING REGIMEN
     Dosage: AS USED: 120 MG/KG  UNIT DOSE: 120 MG/KG
     Route: 065
  4. MYCOPHENOLATE MOFETIL [Suspect]
     Indication: PROPHYLAXIS AGAINST GRAFT VERSUS HOST DISEASE
     Route: 065
  5. TACROLIMUS [Suspect]
     Indication: PROPHYLAXIS AGAINST GRAFT VERSUS HOST DISEASE
     Route: 065

REACTIONS (1)
  - THERAPEUTIC AGENT TOXICITY [None]
